FAERS Safety Report 24020131 (Version 2)
Quarter: 2024Q3

REPORT INFORMATION
  Report Type: Spontaneous
  Country: CZ (occurrence: CZ)
  Receive Date: 20240627
  Receipt Date: 20240702
  Transmission Date: 20241016
  Serious: Yes (Life-Threatening)
  Sender: ROCHE
  Company Number: None

PATIENT
  Age: 49 Year
  Sex: Male
  Weight: 100 kg

DRUGS (2)
  1. ALTEPLASE [Suspect]
     Active Substance: ALTEPLASE
     Indication: Cerebrovascular accident
     Dosage: ONETIME USE IN A 1 HOUR-LONG INFUSION, ENDED WITH 5MG LEFT IN A LINEAR DOSER
     Route: 065
     Dates: start: 20240607, end: 20240607
  2. ALTEPLASE [Suspect]
     Active Substance: ALTEPLASE
     Dosage: ONETIME USE IN A 1 HOUR-LONG INFUSION, ENDED WITH 5MG LEFT IN A LINEAR DOSER
     Route: 065
     Dates: start: 20240607, end: 20240607

REACTIONS (1)
  - Angioedema [Recovered/Resolved]

NARRATIVE: CASE EVENT DATE: 20240607
